FAERS Safety Report 15061508 (Version 2)
Quarter: 2018Q3

REPORT INFORMATION
  Report Type: Spontaneous
  Country: ES (occurrence: ES)
  Receive Date: 20180625
  Receipt Date: 20180709
  Transmission Date: 20181010
  Serious: Yes (Other)
  Sender: FDA-Public Use
  Company Number: ES-MYLANLABS-2018M1044061

PATIENT
  Age: 67 Year
  Sex: Female

DRUGS (9)
  1. PAROXETINE. [Concomitant]
     Active Substance: PAROXETINE
     Indication: DEPRESSION
     Dosage: UNK
  2. ALPRAZOLAM. [Concomitant]
     Active Substance: ALPRAZOLAM
     Indication: DEPRESSION
     Dosage: UNK
  3. SODIUM VALPROATE [Concomitant]
     Active Substance: VALPROATE SODIUM
     Indication: PETIT MAL EPILEPSY
     Dosage: UNKNOWN DOSE
  4. LEVETIRACETAM. [Suspect]
     Active Substance: LEVETIRACETAM
     Indication: FOCAL DYSCOGNITIVE SEIZURES
  5. LEVETIRACETAM. [Suspect]
     Active Substance: LEVETIRACETAM
     Indication: PETIT MAL EPILEPSY
     Dosage: INCREASED TO FULL DOSES
  6. CLONAZEPAM. [Concomitant]
     Active Substance: CLONAZEPAM
     Indication: FOCAL DYSCOGNITIVE SEIZURES
     Dosage: UNKNOWN DOSE
  7. CLONAZEPAM. [Concomitant]
     Active Substance: CLONAZEPAM
     Indication: PETIT MAL EPILEPSY
     Dosage: INCREASED TO FULL DOSES
  8. VIMPAT [Suspect]
     Active Substance: LACOSAMIDE
     Indication: PETIT MAL EPILEPSY
     Dosage: UNKNOWN DOSE
  9. PROPOFOL. [Concomitant]
     Active Substance: PROPOFOL
     Indication: SEIZURE
     Dosage: UNK

REACTIONS (5)
  - Atrioventricular block complete [Unknown]
  - Drug ineffective [Unknown]
  - Aphasia [Unknown]
  - Status epilepticus [Unknown]
  - Off label use [Unknown]
